FAERS Safety Report 8585890-3 (Version None)
Quarter: 2012Q3

REPORT INFORMATION
  Report Type: 
  Country: None (occurrence: None)
  Receive Date: 20120802
  Receipt Date: 20120802
  Transmission Date: 20120928
  Serious: Yes (Hospitalization)
  Sender: FDA-Public Use
  Company Number: None

PATIENT
  Age: 39 Year
  Sex: Female
  Weight: 61.6892 kg

DRUGS (1)
  1. CIPROFLOXACIN [Suspect]
     Indication: CONJUNCTIVITIS
     Dosage: 1-2 DROPS Q2 HRS OPHTHALMIC
     Route: 047
     Dates: start: 20120730, end: 20120730

REACTIONS (5)
  - RASH [None]
  - PAIN [None]
  - BLISTER [None]
  - PRURITUS [None]
  - ERYTHEMA [None]
